FAERS Safety Report 19390292 (Version 3)
Quarter: 2022Q1

REPORT INFORMATION
  Report Type: Spontaneous
  Country: US (occurrence: US)
  Receive Date: 20210608
  Receipt Date: 20220105
  Transmission Date: 20220424
  Serious: No
  Sender: FDA-Public Use
  Company Number: US-INCYTE CORPORATION-2021IN004833

PATIENT

DRUGS (3)
  1. JAKAFI [Suspect]
     Active Substance: RUXOLITINIB
     Indication: Polycythaemia vera
     Dosage: 10 MILLIGRAM, BID
     Route: 048
     Dates: start: 20190612
  2. JAKAFI [Suspect]
     Active Substance: RUXOLITINIB
     Dosage: 10 MILLIGRAM, BID
     Route: 048
     Dates: start: 20190612
  3. JAKAFI [Suspect]
     Active Substance: RUXOLITINIB
     Dosage: 10 MILLIGRAM, BID
     Route: 048
     Dates: start: 20190612

REACTIONS (10)
  - Renal cyst [Unknown]
  - Biliary cyst [Unknown]
  - Pancreatic cyst [Unknown]
  - Pruritus [Unknown]
  - Hepatic steatosis [Unknown]
  - Platelet count increased [Unknown]
  - Bundle branch block [Unknown]
  - Pain in extremity [Unknown]
  - Arthritis [Unknown]
  - Headache [Unknown]
